FAERS Safety Report 9620211 (Version 1)
Quarter: 2013Q4

REPORT INFORMATION
  Report Type: Spontaneous
  Country: US (occurrence: US)
  Receive Date: 20131014
  Receipt Date: 20131014
  Transmission Date: 20140711
  Serious: No
  Sender: FDA-Public Use
  Company Number: US-ALLERGAN-1312470US

PATIENT
  Age: 83 Year
  Sex: Female

DRUGS (3)
  1. ALPHAGAN P [Suspect]
     Indication: GLAUCOMA
     Dosage: 1 GTT, BID
     Route: 047
     Dates: start: 20130813
  2. BETOPTIC [Suspect]
     Indication: GLAUCOMA
  3. LATANOPROST [Concomitant]
     Indication: GLAUCOMA

REACTIONS (12)
  - Thinking abnormal [Unknown]
  - Heart rate decreased [Unknown]
  - Dyspnoea [Unknown]
  - Gait disturbance [Unknown]
  - Apathy [Unknown]
  - Feeling abnormal [Unknown]
  - Inappropriate schedule of drug administration [Unknown]
  - Asthenia [Unknown]
  - Asthenia [Unknown]
  - Somnolence [Unknown]
  - Somnolence [Unknown]
  - Fatigue [Unknown]
